FAERS Safety Report 5404011-9 (Version None)
Quarter: 2007Q3

REPORT INFORMATION
  Report Type: 
  Country: None (occurrence: None)
  Receive Date: 20070802
  Receipt Date: 20070724
  Transmission Date: 20080115
  Serious: Yes (Hospitalization)
  Sender: FDA-Public Use
  Company Number: HQWYE232926JUL07

PATIENT
  Sex: Female

DRUGS (2)
  1. TRIDIOL-28 [Suspect]
     Indication: CONTRACEPTION
     Route: 048
     Dates: start: 20050101, end: 20060601
  2. TRIDIOL-28 [Suspect]
     Route: 048
     Dates: start: 20061001, end: 20070721

REACTIONS (1)
  - HEPATITIS ACUTE [None]
